FAERS Safety Report 4447795-9 (Version None)
Quarter: 2004Q3

REPORT INFORMATION
  Report Type: 
  Country: None (occurrence: None)
  Receive Date: 20040817
  Receipt Date: 20040304
  Transmission Date: 20050211
  Serious: Yes (Hospitalization)
  Sender: FDA-Public Use
  Company Number: MEDI-0001543

PATIENT
  Age: 22 Month
  Sex: Male

DRUGS (2)
  1. SYNAGIS [Suspect]
     Indication: ANTIVIRAL PROPHYLAXIS
     Dosage: 158 MG, 1 IN 30 D, INTRAMUSCULAR
     Route: 030
     Dates: start: 20031001, end: 20040201
  2. SYNAGIS [Suspect]
     Indication: ANTIVIRAL PROPHYLAXIS
     Dosage: 158 MG, 1 IN 30 D, INTRAMUSCULAR
     Route: 030
     Dates: start: 20031001

REACTIONS (2)
  - DEHYDRATION [None]
  - RESPIRATORY SYNCYTIAL VIRUS INFECTION [None]
